FAERS Safety Report 4515683-5 (Version None)
Quarter: 2004Q4

REPORT INFORMATION
  Report Type: 
  Country: None (occurrence: None)
  Receive Date: 20041122
  Receipt Date: 20041109
  Transmission Date: 20050328
  Serious: Yes (Hospitalization)
  Sender: FDA-Public Use
  Company Number: 2004-03221

PATIENT
  Age: 59 Year
  Sex: Male

DRUGS (1)
  1. IMMUCYST (BCG-IT (CONNAUGHT)), AVENTIS PASTEUR LTD., LOT NOT REP, I6 [Suspect]
     Indication: BLADDER CANCER
     Dosage: B.IN., BLADDER
     Dates: start: 20040801

REACTIONS (7)
  - AORTIC VALVE INCOMPETENCE [None]
  - BOVINE TUBERCULOSIS [None]
  - EMPHYSEMA [None]
  - ENDOCARDITIS [None]
  - HEPATIC STEATOSIS [None]
  - HEPATITIS CHOLESTATIC [None]
  - MITRAL VALVE INCOMPETENCE [None]
